FAERS Safety Report 10486509 (Version 1)
Quarter: 2014Q3

REPORT INFORMATION
  Report Type: Spontaneous
  Country: US (occurrence: None)
  Receive Date: 20140930
  Receipt Date: 20140930
  Transmission Date: 20150326
  Serious: Yes (Hospitalization)
  Sender: FDA-Public Use
  Company Number: None

PATIENT
  Age: 54 Year
  Sex: Female
  Weight: 77.11 kg

DRUGS (2)
  1. DULOXETINE [Suspect]
     Active Substance: DULOXETINE
     Indication: DEPRESSION
     Route: 048
  2. DULOXETINE [Suspect]
     Active Substance: DULOXETINE
     Indication: ARTHRALGIA
     Route: 048

REACTIONS (6)
  - Legal problem [None]
  - Therapy cessation [None]
  - Quality of life decreased [None]
  - Emotional disorder [None]
  - Road traffic accident [None]
  - Drug withdrawal syndrome [None]

NARRATIVE: CASE EVENT DATE: 20140919
